FAERS Safety Report 8949672 (Version 3)
Quarter: 2013Q1

REPORT INFORMATION
  Report Type: Spontaneous
  Country: BE (occurrence: BE)
  Receive Date: 20121206
  Receipt Date: 20130129
  Transmission Date: 20140127
  Serious: Yes (Disabling, Other)
  Sender: FDA-Public Use
  Company Number: BE-ASTRAZENECA-2012SE90057

PATIENT
  Sex: Male

DRUGS (1)
  1. CRESTOR [Suspect]
     Route: 048
     Dates: end: 201211

REACTIONS (30)
  - Activities of daily living impaired [Unknown]
  - Pelvic pain [Recovered/Resolved]
  - Disturbance in attention [Unknown]
  - Heart rate abnormal [Unknown]
  - Muscle atrophy [Unknown]
  - Tremor [Unknown]
  - Erectile dysfunction [Unknown]
  - Gastric disorder [Unknown]
  - Diarrhoea [Unknown]
  - Chills [Unknown]
  - Fatigue [Unknown]
  - Memory impairment [Unknown]
  - Myalgia [Recovered/Resolved]
  - Blood creatine phosphokinase increased [Unknown]
  - Muscle spasms [Recovering/Resolving]
  - Arthralgia [Recovering/Resolving]
  - Hypersensitivity [Unknown]
  - Gastrointestinal pain [Unknown]
  - Blood lactate dehydrogenase increased [Unknown]
  - Muscle rigidity [Unknown]
  - Cold sweat [Unknown]
  - Somnolence [Unknown]
  - Alopecia [Unknown]
  - Pain [Unknown]
  - Spinal disorder [Unknown]
  - Blood bilirubin abnormal [Unknown]
  - Depression [Unknown]
  - Anhedonia [Unknown]
  - Aspartate aminotransferase increased [Unknown]
  - Alanine aminotransferase increased [Unknown]
